APPROVED DRUG PRODUCT: SODIUM BUTABARBITAL
Active Ingredient: BUTABARBITAL SODIUM
Strength: 15MG
Dosage Form/Route: TABLET;ORAL
Application: A085418 | Product #001
Applicant: HIKMA PHARMACEUTICALS LLC
Approved: Approved Prior to Jan 1, 1982 | RLD: No | RS: No | Type: DISCN